FAERS Safety Report 5919080-7 (Version None)
Quarter: 2008Q4

REPORT INFORMATION
  Report Type: 
  Country: None (occurrence: None)
  Receive Date: 20081014
  Receipt Date: 20081014
  Transmission Date: 20090506
  Serious: Yes (Hospitalization)
  Sender: FDA-Public Use
  Company Number: None

PATIENT
  Age: 61 Year
  Sex: Male
  Weight: 60.5 kg

DRUGS (2)
  1. MOXIFLOXACIN HCL [Suspect]
     Indication: RESPIRATORY DISORDER
     Dates: start: 20080825, end: 20080901
  2. CIPROFLOXACIN [Suspect]
     Indication: RESPIRATORY DISORDER
     Dosage: 500 MG ONCE PO
     Route: 048
     Dates: start: 20080902, end: 20080902

REACTIONS (5)
  - CHRONIC OBSTRUCTIVE PULMONARY DISEASE [None]
  - CONDITION AGGRAVATED [None]
  - HYPOTENSION [None]
  - RASH MACULAR [None]
  - TACHYCARDIA [None]
